FAERS Safety Report 5613903-7 (Version None)
Quarter: 2008Q1

REPORT INFORMATION
  Report Type: 
  Country: None (occurrence: None)
  Receive Date: 20080205
  Receipt Date: 20080131
  Transmission Date: 20080703
  Serious: Yes (Other)
  Sender: FDA-Public Use
  Company Number: JP-BAYER-200810079BYL

PATIENT
  Sex: Male

DRUGS (6)
  1. ASPIRIN [Suspect]
     Indication: THROMBOSIS PROPHYLAXIS
     Dosage: TOTAL DAILY DOSE: 100 MG  UNIT DOSE: 100 MG
     Route: 048
     Dates: start: 20071012
  2. LIPITOR [Suspect]
     Route: 048
     Dates: start: 20071012, end: 20071116
  3. ARTIST [Suspect]
     Route: 048
     Dates: start: 20071012
  4. MAGLAX [Concomitant]
     Route: 048
     Dates: start: 20071012
  5. ZETIA [Concomitant]
     Dosage: TOTAL DAILY DOSE: 10 MG  UNIT DOSE: 10 MG
     Route: 048
     Dates: start: 20071116, end: 20071218
  6. ZETIA [Concomitant]
     Dosage: TOTAL DAILY DOSE: 5 MG  UNIT DOSE: 10 MG
     Route: 048
     Dates: start: 20071219

REACTIONS (2)
  - LIVER DISORDER [None]
  - PAIN IN EXTREMITY [None]
